FAERS Safety Report 17428829 (Version 3)
Quarter: 2020Q2

REPORT INFORMATION
  Report Type: Spontaneous
  Country: GB (occurrence: GB)
  Receive Date: 20200218
  Receipt Date: 20200518
  Transmission Date: 20200713
  Serious: Yes (Death)
  Sender: FDA-Public Use
  Company Number: NVSC2020GB042291

PATIENT
  Age: 77 Year
  Sex: Male

DRUGS (6)
  1. DOXYCYCLINE. [Suspect]
     Active Substance: DOXYCYCLINE
     Indication: PNEUMONIA
     Route: 065
  2. APIXABAN [Concomitant]
     Active Substance: APIXABAN
     Dosage: 2.5 MG, BID
     Route: 065
  3. APIXABAN [Concomitant]
     Active Substance: APIXABAN
     Indication: PRODUCT USED FOR UNKNOWN INDICATION
     Dosage: 5 MG, BID
     Route: 065
  4. BENSYLPENICILLIN [Suspect]
     Active Substance: PENICILLIN G
     Indication: PNEUMONIA
     Route: 065
  5. APIXABAN [Concomitant]
     Active Substance: APIXABAN
     Dosage: 5 MG, BID
     Route: 065
  6. MEROPENEM. [Suspect]
     Active Substance: MEROPENEM
     Indication: PRODUCT USED FOR UNKNOWN INDICATION
     Dosage: UNK
     Route: 048

REACTIONS (22)
  - Decreased appetite [Fatal]
  - Musculoskeletal pain [Fatal]
  - Lower respiratory tract infection [Fatal]
  - Pulmonary fibrosis [Fatal]
  - Dizziness [Fatal]
  - Syncope [Fatal]
  - Metabolic acidosis [Fatal]
  - Radiation fibrosis - lung [Fatal]
  - Lung neoplasm malignant [Fatal]
  - Blood lactic acid increased [Fatal]
  - Hypophagia [Fatal]
  - Malaise [Fatal]
  - Cough [Fatal]
  - Dyspnoea [Fatal]
  - Therapy non-responder [Fatal]
  - Sepsis [Fatal]
  - Nasopharyngitis [Fatal]
  - Pallor [Fatal]
  - Lung disorder [Fatal]
  - Radiation pneumonitis [Fatal]
  - Liver function test abnormal [Fatal]
  - Asthenia [Fatal]

NARRATIVE: CASE EVENT DATE: 201707
